FAERS Safety Report 12876242 (Version 1)
Quarter: 2016Q4

REPORT INFORMATION
  Report Type: Spontaneous
  Country: US (occurrence: US)
  Receive Date: 20161024
  Receipt Date: 20161024
  Transmission Date: 20170207
  Serious: No
  Sender: FDA-Public Use
  Company Number: US-JNJFOC-20160508902

PATIENT
  Sex: Male
  Weight: 40.82 kg

DRUGS (4)
  1. CONCERTA [Suspect]
     Active Substance: METHYLPHENIDATE HYDROCHLORIDE
     Indication: AUTISM SPECTRUM DISORDER
     Route: 048
     Dates: start: 201505, end: 201606
  2. CONCERTA [Suspect]
     Active Substance: METHYLPHENIDATE HYDROCHLORIDE
     Indication: ATTENTION DEFICIT/HYPERACTIVITY DISORDER
     Dosage: A YEAR AND A HALF AGO
     Route: 048
     Dates: start: 201501, end: 201505
  3. CONCERTA [Suspect]
     Active Substance: METHYLPHENIDATE HYDROCHLORIDE
     Indication: AUTISM SPECTRUM DISORDER
     Dosage: A YEAR AND A HALF AGO
     Route: 048
     Dates: start: 201501, end: 201505
  4. CONCERTA [Suspect]
     Active Substance: METHYLPHENIDATE HYDROCHLORIDE
     Indication: ATTENTION DEFICIT/HYPERACTIVITY DISORDER
     Route: 048
     Dates: start: 201505, end: 201606

REACTIONS (9)
  - Anxiety [Recovered/Resolved]
  - Abnormal loss of weight [Recovered/Resolved]
  - Social anxiety disorder [Recovering/Resolving]
  - Tic [Recovered/Resolved]
  - Body height increased [Unknown]
  - Decreased appetite [Recovered/Resolved]
  - Soliloquy [Recovering/Resolving]
  - Headache [Recovered/Resolved]
  - Restlessness [Unknown]

NARRATIVE: CASE EVENT DATE: 2015
